FAERS Safety Report 7486310-2 (Version None)
Quarter: 2011Q2

REPORT INFORMATION
  Report Type: 
  Country: None (occurrence: None)
  Receive Date: 20110517
  Receipt Date: 20110516
  Transmission Date: 20111010
  Serious: Yes (Death, Other)
  Sender: FDA-Public Use
  Company Number: KR-PFIZER INC-2009275209

PATIENT
  Age: 67 Year
  Sex: Female
  Weight: 51.7 kg

DRUGS (12)
  1. CLINDAMYCIN [Concomitant]
     Indication: PNEUMONIA
     Dosage: 300 MG, 4X/DAY
     Route: 048
     Dates: start: 20080811, end: 20080821
  2. VORICONAZOLE [Suspect]
     Indication: ASPERGILLOSIS
     Dosage: 200 MG, 2X/DAY
     Route: 048
     Dates: start: 20080814, end: 20080821
  3. AMBROXOL [Concomitant]
     Indication: PNEUMONIA
     Dosage: 15 MG, 3X/DAY
     Route: 042
     Dates: start: 20080804, end: 20080903
  4. GANCICLOVIR [Concomitant]
     Indication: CYTOMEGALOVIRUS TEST POSITIVE
     Dosage: 250 MG, 2X/DAY
     Route: 042
     Dates: start: 20080811, end: 20080823
  5. MIDAZOLAM [Concomitant]
     Indication: SEDATION
     Dosage: 5 MG/HR, 1X/DAY
     Route: 041
     Dates: start: 20080803, end: 20080903
  6. TEICOPLANIN [Concomitant]
     Indication: STAPHYLOCOCCAL BACTERAEMIA
     Dosage: 300 MG, 1X/DAY
     Route: 042
     Dates: start: 20080815, end: 20080815
  7. MEROPENEM [Concomitant]
     Indication: PNEUMONIA
     Dosage: 0.5 G, 2X/DAY
     Route: 042
     Dates: start: 20080816, end: 20080820
  8. NOREPINEPHRINE [Concomitant]
     Indication: SEPTIC SHOCK
     Dosage: 5 UG/MIN, 1X/DAY
     Route: 041
     Dates: start: 20080812, end: 20080903
  9. HYDROXYZINE [Concomitant]
     Indication: DRESSLER'S SYNDROME
     Dosage: 20 MG, 4X/DAY
     Route: 048
     Dates: start: 20080705, end: 20080903
  10. LOPERAMIDE OXIDE [Concomitant]
     Indication: DIARRHOEA
     Dosage: 2 MG, 2X/DAY
     Route: 048
     Dates: start: 20080802, end: 20080814
  11. PRIMAQUINE [Concomitant]
     Indication: CYTOMEGALOVIRUS TEST POSITIVE
     Dosage: 15 MG, 1X/DAY
     Route: 048
     Dates: start: 20080811, end: 20080821
  12. PIPERACILLIN [Concomitant]
     Indication: PNEUMONIA
     Dosage: 4.5 G, 3X/DAY
     Route: 042
     Dates: start: 20080807, end: 20080816

REACTIONS (1)
  - DRUG RASH WITH EOSINOPHILIA AND SYSTEMIC SYMPTOMS [None]
